FAERS Safety Report 15348856 (Version 3)
Quarter: 2018Q4

REPORT INFORMATION
  Report Type: Report from Study
  Country: US (occurrence: US)
  Receive Date: 20180904
  Receipt Date: 20181029
  Transmission Date: 20190204
  Serious: Yes (Hospitalization)
  Sender: FDA-Public Use
  Company Number: PHEH2018US036322

PATIENT
  Sex: Female
  Weight: 113.38 kg

DRUGS (2)
  1. COSENTYX [Suspect]
     Active Substance: SECUKINUMAB
     Indication: PSORIASIS
  2. COSENTYX [Suspect]
     Active Substance: SECUKINUMAB
     Indication: PSORIATIC ARTHROPATHY
     Dosage: 300 MG, QMO
     Route: 058
     Dates: start: 201807

REACTIONS (5)
  - Aspiration [Unknown]
  - Gingivitis [Unknown]
  - Vomiting [Unknown]
  - Hypotension [Unknown]
  - Blood glucose increased [Unknown]
